FAERS Safety Report 4940106-1 (Version None)
Quarter: 2006Q1

REPORT INFORMATION
  Report Type: 
  Country: None (occurrence: None)
  Receive Date: 20060310
  Receipt Date: 20051123
  Transmission Date: 20060701
  Serious: Yes (Hospitalization)
  Sender: FDA-Public Use
  Company Number: AU-ROCHE-425942

PATIENT
  Age: 25 Year
  Sex: Female
  Weight: 55 kg

DRUGS (4)
  1. CEFTRIAXONE [Suspect]
     Indication: URINARY TRACT DISORDER
     Dosage: DAILY.
     Route: 042
     Dates: start: 20030120, end: 20030120
  2. BACTRIM [Suspect]
     Indication: URINARY TRACT DISORDER
     Dosage: 2 DOSE UNSPECIFIED DAILY.
     Route: 065
     Dates: start: 20031119, end: 20031119
  3. NORFLOXACIN [Concomitant]
     Indication: URINARY TRACT DISORDER
     Dates: start: 20030120, end: 20030125
  4. ACETAMINOPHEN [Concomitant]
     Indication: PAIN
     Dates: start: 20030120, end: 20030121

REACTIONS (8)
  - CHEST PAIN [None]
  - DIZZINESS [None]
  - DYSPHAGIA [None]
  - DYSPNOEA [None]
  - NAUSEA [None]
  - PRURITUS [None]
  - RASH [None]
  - RASH MACULAR [None]
